FAERS Safety Report 9843123 (Version 2)
Quarter: 2014Q1

REPORT INFORMATION
  Report Type: Spontaneous
  Country: DE (occurrence: DE)
  Receive Date: 20140124
  Receipt Date: 20140204
  Transmission Date: 20141002
  Serious: Yes (Other)
  Sender: FDA-Public Use
  Company Number: DE-BAXTER-2014BAX003391

PATIENT
  Age: 72 Year
  Sex: Female

DRUGS (17)
  1. KIOVIG (20 G/200 ML) [Suspect]
     Indication: POLYNEUROPATHY
     Route: 065
     Dates: start: 20140122, end: 20140122
  2. KIOVIG (20 G/200 ML) [Suspect]
     Indication: OFF LABEL USE
  3. KIOVIG (30 G/300 ML) [Suspect]
     Indication: POLYNEUROPATHY
     Route: 065
     Dates: start: 20140116, end: 20140116
  4. KIOVIG (30 G/300 ML) [Suspect]
     Indication: OFF LABEL USE
     Route: 065
     Dates: start: 20140117, end: 20140117
  5. KIOVIG (1 G/10 ML) [Suspect]
     Indication: POLYNEUROPATHY
     Route: 065
     Dates: start: 201302, end: 201306
  6. KIOVIG (1 G/10 ML) [Suspect]
     Indication: OFF LABEL USE
     Route: 065
     Dates: start: 201312
  7. CICLOSPORIN [Concomitant]
     Indication: PRODUCT USED FOR UNKNOWN INDICATION
     Route: 065
     Dates: start: 20130626, end: 20131128
  8. VOLTAREN RESINAT [Concomitant]
     Indication: PRODUCT USED FOR UNKNOWN INDICATION
     Route: 065
  9. PANTOZOL [Concomitant]
     Indication: PRODUCT USED FOR UNKNOWN INDICATION
     Route: 065
  10. TARGIN [Concomitant]
     Indication: PRODUCT USED FOR UNKNOWN INDICATION
     Route: 065
  11. APONAL [Concomitant]
     Indication: PRODUCT USED FOR UNKNOWN INDICATION
     Route: 065
  12. RESTEX [Concomitant]
     Indication: PRODUCT USED FOR UNKNOWN INDICATION
     Route: 065
  13. THYROXIN [Concomitant]
     Indication: PRODUCT USED FOR UNKNOWN INDICATION
     Route: 065
  14. FERRO SANOL [Concomitant]
     Indication: PRODUCT USED FOR UNKNOWN INDICATION
     Route: 065
  15. IDEOS [Concomitant]
     Indication: PRODUCT USED FOR UNKNOWN INDICATION
     Route: 065
  16. NIFICAL [Concomitant]
     Indication: PRODUCT USED FOR UNKNOWN INDICATION
     Dosage: DROPS
     Route: 065
  17. BETAHISTINE [Concomitant]
     Indication: PRODUCT USED FOR UNKNOWN INDICATION
     Route: 065

REACTIONS (4)
  - Paraesthesia [Recovered/Resolved]
  - Feeling cold [Recovered/Resolved]
  - Headache [Recovering/Resolving]
  - Muscular weakness [Recovering/Resolving]
